FAERS Safety Report 19489555 (Version 1)
Quarter: 2021Q3

REPORT INFORMATION
  Report Type: Spontaneous
  Country: US (occurrence: US)
  Receive Date: 20210703
  Receipt Date: 20210703
  Transmission Date: 20211014
  Serious: No
  Sender: FDA-Public Use
  Company Number: US-CELGENEUS-USA-20210608066

PATIENT
  Sex: Male

DRUGS (1)
  1. REVLIMID [Suspect]
     Active Substance: LENALIDOMIDE
     Indication: PRODUCT USED FOR UNKNOWN INDICATION
     Dosage: DOSE : UNAVAILABLE (NOT PROVIDED);     FREQ : UNAVAILABLE (NOT PROVIDED)
     Route: 048

REACTIONS (2)
  - Rash [Unknown]
  - Memory impairment [Unknown]
